FAERS Safety Report 16726588 (Version 4)
Quarter: 2021Q3

REPORT INFORMATION
  Report Type: Spontaneous
  Country: US (occurrence: US)
  Receive Date: 20190821
  Receipt Date: 20210701
  Transmission Date: 20211014
  Serious: No
  Sender: FDA-Public Use
  Company Number: US-GLAXOSMITHKLINE-US2019151155

PATIENT
  Age: 36 Year
  Sex: Female

DRUGS (2)
  1. BENLYSTA [Suspect]
     Active Substance: BELIMUMAB
     Indication: PRODUCT USED FOR UNKNOWN INDICATION
     Dosage: UNK
     Dates: start: 20210617
  2. BENLYSTA [Suspect]
     Active Substance: BELIMUMAB
     Indication: PRODUCT USED FOR UNKNOWN INDICATION
     Dosage: UNK
     Route: 065
     Dates: start: 20190810

REACTIONS (9)
  - Injection site mass [Unknown]
  - Wrong technique in device usage process [Unknown]
  - Limb discomfort [Unknown]
  - Product storage error [Unknown]
  - Product dose omission issue [Unknown]
  - Product use issue [Unknown]
  - Drug ineffective [Unknown]
  - Injection site bruising [Unknown]
  - Incorrect dose administered [Unknown]

NARRATIVE: CASE EVENT DATE: 20210617
